FAERS Safety Report 8318247-0 (Version None)
Quarter: 2012Q2

REPORT INFORMATION
  Report Type: 
  Country: None (occurrence: None)
  Receive Date: 20120427
  Receipt Date: 20120420
  Transmission Date: 20120825
  Serious: Yes (Hospitalization)
  Sender: FDA-Public Use
  Company Number: US-ABBOTT-12P-163-0925478-00

PATIENT
  Sex: Male
  Weight: 72.64 kg

DRUGS (5)
  1. ENTOCORT EC [Concomitant]
     Indication: PRODUCT USED FOR UNKNOWN INDICATION
  2. HUMIRA [Suspect]
     Indication: CROHN'S DISEASE
     Dates: start: 20110801
  3. FLECAINIDE ACETATE [Concomitant]
     Indication: PRODUCT USED FOR UNKNOWN INDICATION
  4. ATENOLOL [Concomitant]
     Indication: PRODUCT USED FOR UNKNOWN INDICATION
  5. PENTASA [Concomitant]
     Indication: PRODUCT USED FOR UNKNOWN INDICATION

REACTIONS (10)
  - OESOPHAGEAL CANDIDIASIS [None]
  - VOMITING [None]
  - ADHESION [None]
  - NAUSEA [None]
  - ABDOMINAL PAIN [None]
  - OROPHARYNGEAL CANDIDIASIS [None]
  - UNEVALUABLE EVENT [None]
  - ATRIAL FIBRILLATION [None]
  - WHITE BLOOD CELL DISORDER [None]
  - FEELING ABNORMAL [None]
